FAERS Safety Report 5061773-0 (Version None)
Quarter: 2006Q3

REPORT INFORMATION
  Report Type: 
  Country: None (occurrence: None)
  Receive Date: 20060726
  Receipt Date: 20060504
  Transmission Date: 20061208
  Serious: Yes (Other)
  Sender: FDA-Public Use
  Company Number: S2006US07369

PATIENT
  Age: 70 Year
  Sex: Female

DRUGS (1)
  1. DYAZIDE [Suspect]
     Indication: DRUG USE FOR UNKNOWN INDICATION
     Route: 065
     Dates: start: 19660101

REACTIONS (1)
  - BLOOD POTASSIUM DECREASED [None]
